FAERS Safety Report 15058591 (Version 1)
Quarter: 2018Q2

REPORT INFORMATION
  Report Type: Report from Study
  Country: ES (occurrence: ES)
  Receive Date: 20180625
  Receipt Date: 20180625
  Transmission Date: 20180711
  Serious: Yes (Hospitalization)
  Sender: FDA-Public Use
  Company Number: PHHY2018ES025528

PATIENT
  Age: 58 Year
  Sex: Male
  Weight: 68.2 kg

DRUGS (4)
  1. LENVATINIB [Suspect]
     Active Substance: LENVATINIB
     Dosage: BLINDED DOSAGE - DOWN TITRATION BUT SYSTEM MAINTAINED SAME PREVIOUS DOSE DUE TO ERROR (1 IN 1 D)
     Route: 048
     Dates: start: 20180327
  2. EVEROLIMUS. [Suspect]
     Active Substance: EVEROLIMUS
     Indication: RENAL CANCER
     Dosage: 5 MG, QD (DAILY) (1 IN 1 D)
     Route: 048
     Dates: start: 20180104
  3. LENVATINIB [Suspect]
     Active Substance: LENVATINIB
     Indication: RENAL CANCER
     Dosage: BLINDED DOSAGE (1 IN 1 D)
     Route: 048
     Dates: start: 20180104, end: 20180219
  4. LENVATINIB [Suspect]
     Active Substance: LENVATINIB
     Dosage: BLINDED DOSAGE - DOWN TITRATION (1 IN 1 D)
     Route: 048
     Dates: start: 20180220, end: 20180326

REACTIONS (7)
  - Lipase increased [Not Recovered/Not Resolved]
  - Paraesthesia [Unknown]
  - Neuralgia [Unknown]
  - Back pain [Unknown]
  - Amylase increased [Not Recovered/Not Resolved]
  - Spinal cord compression [Not Recovered/Not Resolved]
  - Drug dispensing error [Unknown]

NARRATIVE: CASE EVENT DATE: 20180327
